FAERS Safety Report 10045305 (Version 3)
Quarter: 2019Q1

REPORT INFORMATION
  Report Type: Report from Study
  Country: US (occurrence: US)
  Receive Date: 20140328
  Receipt Date: 20190221
  Transmission Date: 20190417
  Serious: Yes (Death, Hospitalization)
  Sender: FDA-Public Use
  Company Number: US-B.I. PHARMACEUTICALS,INC./RIDGEFIELD-2014-BI-12186II

PATIENT
  Age: 48 Year
  Sex: Female
  Weight: 82.1 kg

DRUGS (21)
  1. ALEVE [Concomitant]
     Active Substance: NAPROXEN SODIUM
     Indication: PAIN
     Dosage: DOSE PER APPLICATION: TABLET OF 200 MG EACH
     Route: 048
  2. BIBW 2992 [Suspect]
     Active Substance: AFATINIB
     Indication: HEREDITARY NON-POLYPOSIS COLORECTAL CANCER SYNDROME
     Route: 048
     Dates: start: 20131104, end: 20131117
  3. REGLAN [Concomitant]
     Active Substance: METOCLOPRAMIDE HYDROCHLORIDE
     Indication: PRODUCT USED FOR UNKNOWN INDICATION
     Dosage: DOSE PER APPLICATION: TABLET OF 20 MG EACH.
     Route: 048
  4. TUMS [Concomitant]
     Active Substance: CALCIUM CARBONATE
     Indication: PRODUCT USED FOR UNKNOWN INDICATION
     Route: 048
  5. BIBW 2992 [Suspect]
     Active Substance: AFATINIB
     Route: 048
  6. BISOPROLOL W/HYDROCHLOROTHIAZIDE [Concomitant]
     Active Substance: BISOPROLOL FUMARATE\HYDROCHLOROTHIAZIDE
     Indication: PRODUCT USED FOR UNKNOWN INDICATION
     Dosage: DOSE PER APPLICATION: 2.5MG/6.25MG
     Route: 048
  7. FAMOTIDINE. [Concomitant]
     Active Substance: FAMOTIDINE
     Indication: PRODUCT USED FOR UNKNOWN INDICATION
     Dosage: DOSE PER APPLICATION: TABLET OF 20 MG EACH.
     Route: 048
  8. LIDOCAINE/PRILOCAINE [Concomitant]
     Active Substance: LIDOCAINE\PRILOCAINE
     Indication: PRODUCT USED FOR UNKNOWN INDICATION
     Dosage: 2.5 % APPLY OVER PORT SITE 30 TO 60 MIN BEFORE SCHEDULED CHEMO TIME AND COVER WITH PLASTIC WRAP
     Route: 061
  9. ONDANSETRON HCL [Concomitant]
     Active Substance: ONDANSETRON HYDROCHLORIDE
     Indication: PRODUCT USED FOR UNKNOWN INDICATION
     Dosage: DOSE PER APPLICATION: TABLET OF 8 MG EACH.
     Route: 048
  10. OMEPRAZOLE. [Concomitant]
     Active Substance: OMEPRAZOLE
     Indication: PRODUCT USED FOR UNKNOWN INDICATION
     Dosage: DOSE PER APPLICATION:DELAYED RELEASE 1 CAPSULE OF 20 MG
     Route: 048
  11. PACLITAXEL. [Concomitant]
     Active Substance: PACLITAXEL
     Indication: SQUAMOUS CELL CARCINOMA
     Dosage: DOSE PER APPLICATION: 175MG/M2, RECHALLENGE DONE
     Route: 042
     Dates: start: 20131118, end: 20131120
  12. FENTANYL. [Concomitant]
     Active Substance: FENTANYL
     Indication: PRODUCT USED FOR UNKNOWN INDICATION
     Dosage: FORMULATION: PATCH, DAILY DOSE: 50 MCG / HR
     Route: 062
  13. FENTANYL. [Concomitant]
     Active Substance: FENTANYL
     Dosage: DAILY DOSE: 75 MCG / HR
     Route: 062
  14. MORPHINE [Concomitant]
     Active Substance: MORPHINE
     Indication: PAIN
     Dosage: DOSE PER APPLICATION: 20 MG  / ML
     Route: 048
  15. DEXAMETHASONE. [Concomitant]
     Active Substance: DEXAMETHASONE
     Indication: PRODUCT USED FOR UNKNOWN INDICATION
     Dosage: DOSE PER APPLICATION: TABLET OF 4 MG EACH.
     Route: 048
  16. BIBW 2992 [Suspect]
     Active Substance: AFATINIB
     Route: 048
     Dates: start: 20131118, end: 20131120
  17. PHENERGAN [Concomitant]
     Active Substance: PROMETHAZINE HYDROCHLORIDE
     Indication: PRODUCT USED FOR UNKNOWN INDICATION
     Dosage: DOSE PER APPLICATION: TABLET OF 25 MG EACH.
     Route: 048
  18. CLARITIN [Concomitant]
     Active Substance: LORATADINE
     Indication: PRODUCT USED FOR UNKNOWN INDICATION
     Dosage: DOSE PER APPLICATION: TABLET OF 10 MG EACH.
     Route: 048
  19. PROAIR HFA [Concomitant]
     Active Substance: ALBUTEROL SULFATE
     Indication: PRODUCT USED FOR UNKNOWN INDICATION
     Route: 055
  20. TRANSDERM SCOP [Concomitant]
     Active Substance: SCOPOLAMINE
     Indication: PRODUCT USED FOR UNKNOWN INDICATION
     Dosage: FORMULATION: TRANSDERM PATCH
     Route: 062
  21. CARBOPLATIN. [Concomitant]
     Active Substance: CARBOPLATIN
     Indication: SQUAMOUS CELL CARCINOMA
     Dosage: DOSE PER APPLICATION: 6, RECHALLENGE DONE
     Route: 042
     Dates: start: 20131118, end: 20131120

REACTIONS (6)
  - Abdominal pain [Unknown]
  - Pancytopenia [Fatal]
  - Diarrhoea [Recovered/Resolved]
  - Urinary tract infection [Unknown]
  - Sepsis [Unknown]
  - Pneumonia [Unknown]

NARRATIVE: CASE EVENT DATE: 20131121
